FAERS Safety Report 8610243-9 (Version None)
Quarter: 2012Q3

REPORT INFORMATION
  Report Type: 
  Country: None (occurrence: None)
  Receive Date: 20120810
  Receipt Date: 20120810
  Transmission Date: 20120928
  Serious: Yes (Death)
  Sender: FDA-Public Use
  Company Number: None

PATIENT
  Sex: Female
  Weight: 72.8 kg

DRUGS (1)
  1. NOVOSEVEN [Suspect]
     Indication: PROCEDURAL HAEMORRHAGE
     Dosage: 2MG X2 DOSES IV-ITRA-OP
     Dates: start: 20120717

REACTIONS (7)
  - TRICUSPID VALVE DISEASE [None]
  - CARDIAC ARREST [None]
  - MITRAL VALVE DISEASE [None]
  - EMBOLIC STROKE [None]
  - PULSELESS ELECTRICAL ACTIVITY [None]
  - BRADYCARDIA [None]
  - MASS [None]
